FAERS Safety Report 14682359 (Version 4)
Quarter: 2018Q1

REPORT INFORMATION
  Report Type: Spontaneous
  Country: US (occurrence: US)
  Receive Date: 20180326
  Receipt Date: 20180329
  Transmission Date: 20180509
  Serious: No
  Sender: FDA-Public Use
  Company Number: US-BIOGEN-2018BI00531485

PATIENT
  Age: 64 Year
  Sex: Female

DRUGS (2)
  1. ZINBRYTA [Suspect]
     Active Substance: DACLIZUMAB
     Indication: RELAPSING-REMITTING MULTIPLE SCLEROSIS
     Route: 058
     Dates: start: 20171106
  2. ZINBRYTA [Suspect]
     Active Substance: DACLIZUMAB
     Route: 065

REACTIONS (6)
  - Decreased immune responsiveness [Unknown]
  - Oral herpes [Recovered/Resolved]
  - Herpes zoster [Recovered/Resolved]
  - Oropharyngeal pain [Not Recovered/Not Resolved]
  - Mouth swelling [Unknown]
  - Oral mucosal blistering [Unknown]

NARRATIVE: CASE EVENT DATE: 201711
